FAERS Safety Report 9637485 (Version 2)
Quarter: 2013Q4

REPORT INFORMATION
  Report Type: Spontaneous
  Country: US (occurrence: None)
  Receive Date: 20131018
  Receipt Date: 20131023
  Transmission Date: 20140711
  Serious: Yes (Hospitalization)
  Sender: FDA-Public Use
  Company Number: 1937950

PATIENT
  Age: 49 Year
  Sex: Female

DRUGS (14)
  1. LIDOCAINE HCL INJECTION [Suspect]
     Indication: JOINT INJECTION
     Dates: start: 20130905, end: 20130905
  2. TRIAMCINOLONE DIACETATE [Suspect]
     Indication: JOINT INJECTION
     Dates: start: 20130905, end: 20130905
  3. BETADINE [Concomitant]
  4. ALCOHOL [Concomitant]
  5. LORATADINE [Concomitant]
  6. FLUOXETINE [Concomitant]
  7. PRILOSEC /00661201/ [Concomitant]
  8. PROAIR (SALBUTAMOL SULFATE) [Concomitant]
  9. METFORMIN [Concomitant]
  10. ADVAIR [Concomitant]
  11. PRAVASTATIN [Concomitant]
  12. EVISTA [Concomitant]
  13. CLONAZEPAM [Concomitant]
  14. CALCIUM [Concomitant]

REACTIONS (1)
  - Arthritis bacterial [None]
